FAERS Safety Report 11294907 (Version 1)
Quarter: 2015Q3

REPORT INFORMATION
  Report Type: Report from Study
  Country: US (occurrence: US)
  Receive Date: 20150723
  Receipt Date: 20150723
  Transmission Date: 20151125
  Serious: Yes (Other)
  Sender: FDA-Public Use
  Company Number: PHEH2015US007992

PATIENT
  Age: 52 Year
  Sex: Female

DRUGS (13)
  1. MIRALAX [Concomitant]
     Active Substance: POLYETHYLENE GLYCOL 3350
     Indication: CONSTIPATION
     Dosage: MIX 17 GRAMS IN 8 OUNCES OF WATER AND DRINK ONCE DAILY
     Route: 048
     Dates: start: 20150225
  2. SYNTHROID [Concomitant]
     Active Substance: LEVOTHYROXINE SODIUM
     Indication: HYPOTHYROIDISM
     Dosage: 1 DF, QD
     Route: 048
     Dates: start: 20131119
  3. FERROUS SULFATE [Concomitant]
     Active Substance: FERROUS SULFATE\FERROUS SULFATE, DRIED
     Indication: PRODUCT USED FOR UNKNOWN INDICATION
     Dosage: 325 MG, UNK
     Route: 048
  4. METOPROLOL TARTRATE. [Concomitant]
     Active Substance: METOPROLOL TARTRATE
     Indication: HYPERTENSION
     Dosage: 1 DF, QD
     Route: 048
     Dates: start: 20140114
  5. GLEEVEC [Suspect]
     Active Substance: IMATINIB MESYLATE
     Indication: NEOPLASM MALIGNANT
     Dosage: 400 MG, QD
     Route: 065
     Dates: start: 20131212
  6. GLEEVEC [Suspect]
     Active Substance: IMATINIB MESYLATE
     Indication: GASTROINTESTINAL STROMAL TUMOUR
     Dosage: 200 MG, QD
     Route: 048
     Dates: start: 20150325
  7. LEVOTHYROXIN [Concomitant]
     Active Substance: LEVOTHYROXINE
     Indication: PRODUCT USED FOR UNKNOWN INDICATION
     Dosage: UNK
     Route: 065
     Dates: start: 2009
  8. ZANTAC [Concomitant]
     Active Substance: RANITIDINE HYDROCHLORIDE
     Indication: GASTRITIS EROSIVE
     Dosage: 1 DF, 1 TO 2 TIMES DAILY
     Route: 048
     Dates: start: 20150225
  9. ACETAMINOPHEN AND CODEINE [Concomitant]
     Active Substance: ACETAMINOPHEN\CODEINE PHOSPHATE
     Indication: PAIN
     Dosage: 300 MG ACET, 60 MG CODEINE, 1 TAB EVERY 6 HRS AS NEEDED
     Route: 048
     Dates: start: 20140320
  10. GLEEVEC [Suspect]
     Active Substance: IMATINIB MESYLATE
     Dosage: 300 MG, UNK
     Route: 065
     Dates: start: 20150326
  11. METOPROLOL [Concomitant]
     Active Substance: METOPROLOL
     Route: 065
  12. GLEEVEC [Suspect]
     Active Substance: IMATINIB MESYLATE
     Dosage: 200 MG, QD (DAILY)
     Route: 065
     Dates: start: 20150427
  13. FERROUS SULFATE [Concomitant]
     Active Substance: FERROUS SULFATE\FERROUS SULFATE, DRIED
     Indication: IRON DEFICIENCY ANAEMIA
     Dosage: 1 DF, QD
     Route: 048
     Dates: start: 20150225

REACTIONS (29)
  - Inappropriate schedule of drug administration [Unknown]
  - Blood bicarbonate increased [Unknown]
  - Pain [Unknown]
  - Gastric disorder [Unknown]
  - Hiatus hernia [Unknown]
  - Glomerular filtration rate decreased [Unknown]
  - Haemoglobin decreased [Unknown]
  - Arthralgia [Unknown]
  - Pain in extremity [Unknown]
  - Renal failure [Unknown]
  - Nodule [Unknown]
  - Abdominal pain upper [Unknown]
  - Sluggishness [Unknown]
  - Eosinophil percentage increased [Unknown]
  - Nausea [Recovered/Resolved]
  - Asthenia [Not Recovered/Not Resolved]
  - Cough [Unknown]
  - Mean cell haemoglobin decreased [Unknown]
  - Blood creatinine increased [Unknown]
  - Blood glucose decreased [Unknown]
  - Fatigue [Unknown]
  - Mean cell haemoglobin concentration decreased [Unknown]
  - Diverticulum intestinal [Unknown]
  - Mean cell volume decreased [Unknown]
  - Osteoarthritis [Unknown]
  - Abdominal pain [Unknown]
  - Eosinophil count increased [Unknown]
  - Peripheral swelling [Unknown]
  - Blood lactate dehydrogenase increased [Unknown]

NARRATIVE: CASE EVENT DATE: 20140916
